FAERS Safety Report 18387052 (Version 1)
Quarter: 2020Q4

REPORT INFORMATION
  Report Type: Spontaneous
  Country: US (occurrence: US)
  Receive Date: 20201014
  Receipt Date: 20201014
  Transmission Date: 20210114
  Serious: Yes (Hospitalization)
  Sender: FDA-Public Use
  Company Number: None

PATIENT
  Sex: Female

DRUGS (21)
  1. ATOMOXETINE. [Concomitant]
     Active Substance: ATOMOXETINE HYDROCHLORIDE
  2. BUSPIRONE [Concomitant]
     Active Substance: BUSPIRONE HYDROCHLORIDE
  3. VITAMIN D3 [Concomitant]
     Active Substance: CHOLECALCIFEROL
  4. FLUCINONIDE [Concomitant]
  5. TRIAMCINOLON [Concomitant]
  6. ASPIRIN. [Concomitant]
     Active Substance: ASPIRIN
  7. DULOXETINE. [Concomitant]
     Active Substance: DULOXETINE
  8. AMOX/K [Concomitant]
  9. SENA S [Concomitant]
  10. VALSAR/HCTZ [Concomitant]
  11. QUETIAPINE. [Concomitant]
     Active Substance: QUETIAPINE
  12. DECONEX [Concomitant]
     Active Substance: GUAIFENESIN\PHENYLEPHRINE HYDROCHLORIDE
  13. COSENTYX [Suspect]
     Active Substance: SECUKINUMAB
     Indication: PSORIASIS
     Route: 058
     Dates: start: 201906
  14. HYDROCO/APAP [Concomitant]
     Active Substance: ACETAMINOPHEN\HYDROCODONE
  15. HYDROXYZ PAM [Concomitant]
     Active Substance: HYDROXYZINE PAMOATE
  16. AZET/FLUTIC [Concomitant]
  17. CEFDINIR. [Concomitant]
     Active Substance: CEFDINIR
  18. METHYLPRED [Concomitant]
     Active Substance: METHYLPREDNISOLONE
  19. MONTELUKAST [Concomitant]
     Active Substance: MONTELUKAST SODIUM
  20. BISOPROL [Concomitant]
     Active Substance: BISOPROLOL FUMARATE
  21. LEVOTHYROXIN [Concomitant]
     Active Substance: LEVOTHYROXINE

REACTIONS (3)
  - Coronary artery occlusion [None]
  - Postoperative wound infection [None]
  - Depression [None]
